FAERS Safety Report 4598489-0 (Version None)
Quarter: 2005Q1

REPORT INFORMATION
  Report Type: 
  Country: None (occurrence: None)
  Receive Date: 20050304
  Receipt Date: 20050222
  Transmission Date: 20050727
  Serious: Yes (Life-Threatening, Other)
  Sender: FDA-Public Use
  Company Number: DE-JNJFOC-20050103374

PATIENT
  Sex: Female
  Weight: 140 kg

DRUGS (3)
  1. HALOPERIDOL DECANOATE [Suspect]
     Route: 030
  2. CIATYL [Suspect]
     Route: 030
  3. DIAZEPAM [Concomitant]
     Route: 049

REACTIONS (2)
  - RENAL FAILURE ACUTE [None]
  - RHABDOMYOLYSIS [None]
